FAERS Safety Report 7351777-7 (Version None)
Quarter: 2011Q1

REPORT INFORMATION
  Report Type: 
  Country: None (occurrence: None)
  Receive Date: 20110315
  Receipt Date: 20100823
  Transmission Date: 20110831
  Serious: Yes (Other)
  Sender: FDA-Public Use
  Company Number: US-BAYER-201019723NA

PATIENT
  Sex: Female
  Weight: 79 kg

DRUGS (9)
  1. IBUPROFEN [Concomitant]
     Dosage: 800 MG, UNK
     Dates: start: 20080101
  2. YAZ [Suspect]
     Dosage: UNK UNK, UNK
     Route: 048
     Dates: start: 20080201, end: 20080501
  3. METOCLOPRAMIDE HCL [Concomitant]
  4. FERROUS SULFATE TAB [Concomitant]
  5. YASMIN [Suspect]
     Route: 048
     Dates: start: 20070101
  6. PROMETHAZINE [Concomitant]
  7. NAPROXEN [Concomitant]
     Dosage: 500 MG, UNK
     Dates: start: 20080401
  8. HYDROCODONE BITARTRATE [Concomitant]
  9. NAPROXEN [Concomitant]

REACTIONS (2)
  - CHOLELITHIASIS [None]
  - CHOLECYSTITIS CHRONIC [None]
